FAERS Safety Report 5601618-0 (Version None)
Quarter: 2008Q1

REPORT INFORMATION
  Report Type: 
  Country: None (occurrence: None)
  Receive Date: 20080124
  Receipt Date: 20080118
  Transmission Date: 20080703
  Serious: No
  Sender: FDA-Public Use
  Company Number: CN-BAXTER-2008BH000522

PATIENT
  Sex: Male

DRUGS (4)
  1. HUMAN ALBUMIN GRIFOLS 20% [Suspect]
     Indication: HEPATIC CIRRHOSIS
     Route: 042
     Dates: start: 20080114, end: 20080114
  2. HUMAN ALBUMIN GRIFOLS 20% [Suspect]
     Indication: ASCITES
     Route: 042
     Dates: start: 20080114, end: 20080114
  3. DIURETIC DRUG [Concomitant]
     Indication: DRUG USE FOR UNKNOWN INDICATION
     Dosage: DOSE UNIT:UNKNOWN
     Route: 042
  4. ANTIBIOTICS [Concomitant]
     Indication: DRUG USE FOR UNKNOWN INDICATION
     Dosage: DOSE UNIT:UNKNOWN
     Route: 042

REACTIONS (1)
  - HYPERSENSITIVITY [None]
